FAERS Safety Report 24113093 (Version 2)
Quarter: 2024Q3

REPORT INFORMATION
  Report Type: Spontaneous
  Country: NO (occurrence: NO)
  Receive Date: 20240719
  Receipt Date: 20240730
  Transmission Date: 20241017
  Serious: Yes (Other)
  Sender: CSL BEHRING
  Company Number: NO-BEH-2024173524

PATIENT
  Sex: Male

DRUGS (3)
  1. PRIVIGEN [Suspect]
     Active Substance: HUMAN IMMUNOGLOBULIN G
     Indication: Myelin oligodendrocyte glycoprotein antibody-associated disease
     Dosage: 180 G DURING 3 DAYS
     Route: 065
  2. PRIVIGEN [Suspect]
     Active Substance: HUMAN IMMUNOGLOBULIN G
     Dosage: UNK
     Route: 065
  3. PRIVIGEN [Suspect]
     Active Substance: HUMAN IMMUNOGLOBULIN G
     Dosage: UNK
     Route: 065
     Dates: start: 20240701

REACTIONS (24)
  - Anaphylactic reaction [Unknown]
  - Drug hypersensitivity [Unknown]
  - Skin swelling [Unknown]
  - Skin tightness [Unknown]
  - Rash [Unknown]
  - Anxiety [Unknown]
  - Blood creatinine increased [Unknown]
  - Throat irritation [Unknown]
  - Pruritus [Unknown]
  - Urticaria [Unknown]
  - Abdominal discomfort [Unknown]
  - Abdominal pain upper [Unknown]
  - Chest pain [Unknown]
  - Chest discomfort [Unknown]
  - Hyperventilation [Unknown]
  - Throat irritation [Unknown]
  - Pruritus [Unknown]
  - Urticaria [Unknown]
  - Abdominal discomfort [Unknown]
  - Abdominal pain upper [Unknown]
  - Chest pain [Unknown]
  - Chest discomfort [Unknown]
  - Hyperventilation [Unknown]
  - Off label use [Unknown]

NARRATIVE: CASE EVENT DATE: 20240701
